FAERS Safety Report 5232312-6 (Version None)
Quarter: 2007Q1

REPORT INFORMATION
  Report Type: 
  Country: None (occurrence: None)
  Receive Date: 20070205
  Receipt Date: 20070124
  Transmission Date: 20070707
  Serious: Yes (Hospitalization)
  Sender: FDA-Public Use
  Company Number: 2007-00173

PATIENT
  Sex: Female

DRUGS (3)
  1. VELCADE [Suspect]
     Indication: MULTIPLE MYELOMA
     Dosage: 1.00 MG/M2, INTRAVENOUS
     Route: 042
  2. DURAGESIC-100 [Suspect]
     Indication: DRUG USE FOR UNKNOWN INDICATION
     Dosage: 75.00 UG, TRANSDERMAL
     Route: 062
  3. DEXAMETHASONE [Concomitant]

REACTIONS (4)
  - CONFUSIONAL STATE [None]
  - ENCEPHALOPATHY [None]
  - SOMNOLENCE [None]
  - THROMBOCYTOPENIA [None]
